FAERS Safety Report 8449872-4 (Version None)
Quarter: 2012Q2

REPORT INFORMATION
  Report Type: 
  Country: None (occurrence: None)
  Receive Date: 20120620
  Receipt Date: 20120613
  Transmission Date: 20120825
  Serious: Yes (Hospitalization, Other)
  Sender: FDA-Public Use
  Company Number: BR-US-EMD SERONO, INC.-7083764

PATIENT
  Sex: Female

DRUGS (2)
  1. REBIF [Suspect]
     Indication: RELAPSING-REMITTING MULTIPLE SCLEROSIS
     Dates: start: 20070801, end: 20091001
  2. REBIF [Suspect]
     Dates: start: 20091001

REACTIONS (10)
  - BALANCE DISORDER [None]
  - HYPOAESTHESIA [None]
  - GAIT DISTURBANCE [None]
  - MUSCLE FATIGUE [None]
  - VISUAL ACUITY REDUCED [None]
  - ARTHRALGIA [None]
  - DIZZINESS [None]
  - ARTHRITIS INFECTIVE [None]
  - CHONDROPATHY [None]
  - FALL [None]
